FAERS Safety Report 15154076 (Version 1)
Quarter: 2018Q3

REPORT INFORMATION
  Report Type: Spontaneous
  Country: RO (occurrence: RO)
  Receive Date: 20180717
  Receipt Date: 20180717
  Transmission Date: 20181010
  Serious: Yes (Death)
  Sender: FDA-Public Use
  Company Number: RO-ASTRAZENECA-2018SE91253

PATIENT
  Age: 67 Year
  Sex: Female

DRUGS (2)
  1. ASA [Concomitant]
     Active Substance: ASPIRIN
  2. BRILIQUE [Suspect]
     Active Substance: TICAGRELOR
     Indication: MYOCARDIAL INFARCTION
     Route: 048

REACTIONS (1)
  - Death [Fatal]
